FAERS Safety Report 21087681 (Version 1)
Quarter: 2022Q3

REPORT INFORMATION
  Report Type: Spontaneous
  Country: US (occurrence: US)
  Receive Date: 20220715
  Receipt Date: 20220715
  Transmission Date: 20221026
  Serious: No
  Sender: FDA-Public Use
  Company Number: US-BIOGEN-2022BI01129721

PATIENT
  Age: 45 Year
  Sex: Male

DRUGS (2)
  1. TECFIDERA [Suspect]
     Active Substance: DIMETHYL FUMARATE
     Indication: Multiple sclerosis
     Route: 050
     Dates: start: 20220603
  2. TECFIDERA [Suspect]
     Active Substance: DIMETHYL FUMARATE
     Route: 050
     Dates: end: 20220622

REACTIONS (5)
  - Chromaturia [Unknown]
  - Weight decreased [Unknown]
  - Fluid intake reduced [Unknown]
  - Diarrhoea [Not Recovered/Not Resolved]
  - Abdominal pain upper [Unknown]

NARRATIVE: CASE EVENT DATE: 20220601
